FAERS Safety Report 4530658-8 (Version None)
Quarter: 2004Q4

REPORT INFORMATION
  Report Type: 
  Country: None (occurrence: None)
  Receive Date: 20041216
  Receipt Date: 20041202
  Transmission Date: 20050328
  Serious: Yes (Hospitalization, Other)
  Sender: FDA-Public Use
  Company Number: THYR-10159

PATIENT
  Age: 78 Year
  Sex: Male
  Weight: 90 kg

DRUGS (6)
  1. THYROGEN [Suspect]
     Indication: DIAGNOSTIC PROCEDURE
     Dosage: 0.9 MG QD IM
     Route: 030
     Dates: start: 20040216, end: 20040217
  2. PREDNISONE TAB [Suspect]
     Indication: NEPHROTIC SYNDROME
     Dosage: 80 MG NA
     Dates: start: 20040527
  3. ENANTONE [Concomitant]
  4. CASODEX [Concomitant]
  5. ALDALIX [Concomitant]
  6. LEVOTHYROX [Concomitant]

REACTIONS (11)
  - CARDIAC DISORDER [None]
  - CHEST X-RAY ABNORMAL [None]
  - DEPRESSION [None]
  - HAEMOGLOBIN DECREASED [None]
  - HYPERTENSION [None]
  - HYPOMANIA [None]
  - NEPHROPATHY [None]
  - NEPHROTIC SYNDROME [None]
  - RENAL FAILURE [None]
  - VENTRICULAR HYPERTROPHY [None]
  - WEIGHT DECREASED [None]
